FAERS Safety Report 13642073 (Version 3)
Quarter: 2017Q4

REPORT INFORMATION
  Report Type: Report from Study
  Country: None (occurrence: PR)
  Receive Date: 20170612
  Receipt Date: 20171026
  Transmission Date: 20180320
  Serious: Yes (Other)
  Sender: FDA-Public Use
  Company Number: PR-ABBVIE-17K-131-2001710-00

PATIENT
  Age: 69 Year
  Sex: Female

DRUGS (13)
  1. HUMIRA [Suspect]
     Active Substance: ADALIMUMAB
     Indication: RHEUMATOID ARTHRITIS
     Route: 058
     Dates: start: 2015, end: 2016
  2. KEPPRA [Concomitant]
     Active Substance: LEVETIRACETAM
     Indication: SEIZURE
  3. NEURONTIN [Concomitant]
     Active Substance: GABAPENTIN
     Indication: CONVULSION PROPHYLAXIS
     Route: 048
     Dates: start: 2007
  4. HUMIRA [Suspect]
     Active Substance: ADALIMUMAB
     Route: 058
     Dates: start: 20170531, end: 201708
  5. DEPAKOTE ER [Concomitant]
     Active Substance: DIVALPROEX SODIUM
     Indication: CEREBROVASCULAR ACCIDENT
  6. SYMAX [Concomitant]
     Active Substance: HYOSCYAMINE SULFATE
     Indication: GASTRIC DISORDER
     Route: 048
  7. KEPPRA [Concomitant]
     Active Substance: LEVETIRACETAM
     Indication: CEREBROVASCULAR ACCIDENT
     Route: 048
     Dates: start: 2007
  8. DEPAKOTE ER [Concomitant]
     Active Substance: DIVALPROEX SODIUM
     Indication: SEIZURE
     Route: 048
     Dates: start: 2007
  9. METHOTREXATE. [Concomitant]
     Active Substance: METHOTREXATE
     Indication: RHEUMATOID ARTHRITIS
     Dates: start: 2016
  10. CATAFLAM [Concomitant]
     Active Substance: DICLOFENAC POTASSIUM
     Indication: MYALGIA
     Route: 048
  11. KEPPRA [Concomitant]
     Active Substance: LEVETIRACETAM
     Indication: DYSKINESIA
  12. FIORICET [Concomitant]
     Active Substance: ACETAMINOPHEN\BUTALBITAL\CAFFEINE
     Indication: HEADACHE
     Route: 048
     Dates: start: 2007
  13. FIORICET [Concomitant]
     Active Substance: ACETAMINOPHEN\BUTALBITAL\CAFFEINE
     Indication: MIGRAINE

REACTIONS (17)
  - Seizure [Unknown]
  - Cerebrovascular accident [Recovered/Resolved with Sequelae]
  - Haemorrhagic stroke [Recovered/Resolved with Sequelae]
  - Anxiety [Unknown]
  - Migraine [Unknown]
  - Injection site pain [Unknown]
  - Rash macular [Unknown]
  - Skin discolouration [Unknown]
  - Eye irritation [Not Recovered/Not Resolved]
  - Incoherent [Not Recovered/Not Resolved]
  - Irritable bowel syndrome [Unknown]
  - Malaise [Not Recovered/Not Resolved]
  - Memory impairment [Not Recovered/Not Resolved]
  - Dizziness [Recovered/Resolved]
  - Haematoma [Not Recovered/Not Resolved]
  - Feeling of despair [Not Recovered/Not Resolved]
  - Dizziness [Not Recovered/Not Resolved]

NARRATIVE: CASE EVENT DATE: 2015
